FAERS Safety Report 9386323 (Version 1)
Quarter: 2013Q3

REPORT INFORMATION
  Report Type: Spontaneous
  Country: GB (occurrence: GB)
  Receive Date: 20130708
  Receipt Date: 20130708
  Transmission Date: 20140515
  Serious: Yes (Death, Hospitalization, Other)
  Sender: FDA-Public Use
  Company Number: GB-JNJFOC-20130618801

PATIENT
  Sex: 0

DRUGS (2)
  1. PARACETAMOL [Suspect]
     Route: 065
  2. PARACETAMOL [Suspect]
     Indication: PRODUCT USED FOR UNKNOWN INDICATION
     Route: 065

REACTIONS (7)
  - Death [Fatal]
  - Acute hepatic failure [Unknown]
  - Hepatic failure [Unknown]
  - Liver injury [Unknown]
  - Blood creatinine increased [Unknown]
  - Blood sodium decreased [Unknown]
  - Liver transplant [None]
